FAERS Safety Report 15121546 (Version 1)
Quarter: 2018Q3

REPORT INFORMATION
  Report Type: Spontaneous
  Country: DE (occurrence: DE)
  Receive Date: 20180709
  Receipt Date: 20180709
  Transmission Date: 20181010
  Serious: Yes (Other)
  Sender: FDA-Public Use
  Company Number: DE-AUROBINDO-AUR-APL-2018-035321

PATIENT
  Age: 50 Year
  Sex: Male

DRUGS (18)
  1. OMEPRAZOLE. [Interacting]
     Active Substance: OMEPRAZOLE
     Indication: HIV INFECTION
     Dosage: 40 MILLIGRAM, DAILY
     Route: 065
  2. ABILIFY MAINTENA [Suspect]
     Active Substance: ARIPIPRAZOLE
     Indication: BIPOLAR DISORDER
     Dosage: 300 MILLIGRAM, EVERY MONTH (300 MG, QM)
     Route: 030
     Dates: start: 20150831
  3. SILYBUM MARIANUM EXTRACT [Interacting]
     Active Substance: DIETARY SUPPLEMENT\HERBALS\MILK THISTLE
     Indication: HIV TEST
     Dosage: UNK
     Route: 065
  4. SILYBUM MARIANUM EXTRACT [Interacting]
     Active Substance: DIETARY SUPPLEMENT\HERBALS\MILK THISTLE
     Indication: ANXIETY DISORDER
     Dosage: 179.85 MILLIGRAM, DAILY
     Route: 030
  5. ARIPIPRAZOLE TABLETS [Suspect]
     Active Substance: ARIPIPRAZOLE
     Indication: BIPOLAR DISORDER
     Dosage: 10 MILLIGRAM, DAILY
     Route: 048
     Dates: start: 20150713, end: 20150802
  6. ARIPIPRAZOLE TABLETS [Interacting]
     Active Substance: ARIPIPRAZOLE
     Dosage: 5 MILLIGRAM, DAILY
     Route: 048
     Dates: start: 20150831, end: 20150928
  7. SAQUINAVIR [Interacting]
     Active Substance: SAQUINAVIR
     Indication: HIV INFECTION
     Dosage: 1000 MILLIGRAM, DAILY
     Route: 065
     Dates: start: 2005
  8. ARIPIPRAZOLE TABLETS [Interacting]
     Active Substance: ARIPIPRAZOLE
     Dosage: 10 MILLIGRAM, DAILY
     Route: 048
     Dates: start: 20150621, end: 20150705
  9. ABILIFY MAINTENA [Suspect]
     Active Substance: ARIPIPRAZOLE
     Dosage: 300 MILLIGRAM, EVERY MONTH (300 MG, QM)
     Route: 030
     Dates: start: 20150803
  10. RITONAVIR. [Interacting]
     Active Substance: RITONAVIR
     Indication: HIV INFECTION
     Dosage: 400 MILLIGRAM, DAILY
     Route: 065
     Dates: start: 2005
  11. ABILIFY MAINTENA [Suspect]
     Active Substance: ARIPIPRAZOLE
     Dosage: 400 MILLIGRAM, EVERY MONTH (400 MG, QM)
     Route: 030
     Dates: start: 20150928
  12. ARIPIPRAZOLE TABLETS [Interacting]
     Active Substance: ARIPIPRAZOLE
     Dosage: 5 MILLIGRAM, DAILY
     Route: 048
     Dates: start: 20150705, end: 20150712
  13. LOPINAVIR [Interacting]
     Active Substance: LOPINAVIR
     Indication: HIV INFECTION
     Dosage: 100 MILLIGRAM, DAILY
     Route: 065
     Dates: start: 2005
  14. ARIPIPRAZOLE TABLETS [Interacting]
     Active Substance: ARIPIPRAZOLE
     Dosage: 5 MILLIGRAM, DAILY
     Route: 048
     Dates: start: 20150803, end: 20150831
  15. ARIPIPRAZOLE TABLETS [Interacting]
     Active Substance: ARIPIPRAZOLE
     Dosage: 5 MILLIGRAM, DAILY
     Route: 048
     Dates: start: 20150606, end: 20150620
  16. ABILIFY MAINTENA [Suspect]
     Active Substance: ARIPIPRAZOLE
     Dosage: 200 MILLIGRAM, EVERY MONTH (200 MG, QM)
     Route: 030
     Dates: start: 20150706
  17. ABILIFY MAINTENA [Suspect]
     Active Substance: ARIPIPRAZOLE
     Dosage: 400 MILLIGRAM, EVERY MONTH (400 MG, QM)
     Route: 030
     Dates: start: 20151123
  18. ABILIFY MAINTENA [Suspect]
     Active Substance: ARIPIPRAZOLE
     Dosage: 400 MILLIGRAM,EVERY MONTH (400 MG, QM)
     Route: 030
     Dates: start: 20151026

REACTIONS (6)
  - Prescribed underdose [Unknown]
  - Drug effective for unapproved indication [Unknown]
  - Bipolar disorder [Unknown]
  - Condition aggravated [Unknown]
  - Drug level below therapeutic [Unknown]
  - Drug interaction [Unknown]
